FAERS Safety Report 16029198 (Version 1)
Quarter: 2019Q2

REPORT INFORMATION
  Report Type: Spontaneous
  Country: US (occurrence: US)
  Receive Date: 20190302
  Receipt Date: 20190302
  Transmission Date: 20190711
  Serious: Yes (Hospitalization)
  Sender: FDA-Public Use
  Company Number: None

PATIENT
  Age: 15 Year
  Sex: Male
  Weight: 71.6 kg

DRUGS (1)
  1. PROCHLORPERAZINE. [Suspect]
     Active Substance: PROCHLORPERAZINE
     Indication: HEADACHE
     Route: 042
     Dates: start: 20181105, end: 20181107

REACTIONS (4)
  - Pain [None]
  - Dystonia [None]
  - Torticollis [None]
  - Tongue spasm [None]

NARRATIVE: CASE EVENT DATE: 20181105
